FAERS Safety Report 4641391-6 (Version None)
Quarter: 2005Q2

REPORT INFORMATION
  Report Type: 
  Country: None (occurrence: None)
  Receive Date: 20050421
  Receipt Date: 20050411
  Transmission Date: 20051028
  Serious: Yes (Hospitalization, Other)
  Sender: FDA-Public Use
  Company Number: GSK37089

PATIENT
  Sex: Male

DRUGS (2)
  1. TUMS [Suspect]
     Indication: ILL-DEFINED DISORDER
     Route: 048
     Dates: start: 19850101, end: 20020101
  2. TUMS EXTRA STRENGTH ASSORTED MINT [Suspect]
     Indication: ILL-DEFINED DISORDER
     Route: 048
     Dates: start: 20020101

REACTIONS (2)
  - CHOLELITHIASIS [None]
  - DRUG ABUSER [None]
